FAERS Safety Report 9882032 (Version 1)
Quarter: 2014Q1

REPORT INFORMATION
  Report Type: Spontaneous
  Country: US (occurrence: None)
  Receive Date: 20140207
  Receipt Date: 20140207
  Transmission Date: 20141002
  Serious: Yes (Other)
  Sender: FDA-Public Use
  Company Number: None

PATIENT
  Sex: Female

DRUGS (1)
  1. BRILLIANT BLUE [Suspect]
     Dates: start: 20140129

REACTIONS (2)
  - Endophthalmitis [None]
  - Post procedural complication [None]
